FAERS Safety Report 8622606-6 (Version None)
Quarter: 2012Q3

REPORT INFORMATION
  Report Type: 
  Country: None (occurrence: None)
  Receive Date: 20120827
  Receipt Date: 20120813
  Transmission Date: 20120928
  Serious: No
  Sender: FDA-Public Use
  Company Number: US-B.I. PHARMACEUTICALS,INC./RIDGEFIELD-2012-BP-19039BP

PATIENT
  Sex: Female

DRUGS (8)
  1. VERAPAMIL [Concomitant]
     Indication: HYPERTENSION
     Dosage: 480 MG
     Route: 048
  2. SINGULAIR [Concomitant]
     Indication: ASTHMA
     Route: 048
  3. DULERA [Concomitant]
     Indication: ASTHMA
     Dosage: 4 PUF
     Route: 055
  4. LORAZEPAM [Concomitant]
     Indication: ANXIETY
     Dosage: 1 MG
     Route: 048
  5. FLUOXETINE HCL [Concomitant]
     Indication: ANXIETY
     Dosage: 80 MG
     Route: 048
  6. PROAIR HFA [Concomitant]
     Indication: ASTHMA
     Route: 055
  7. IPRATROPIUM BROMIDE [Suspect]
     Indication: ASTHMA
     Dosage: 136 MCG
     Route: 055
     Dates: start: 20050101
  8. ZANTAC [Concomitant]
     Indication: DYSPEPSIA
     Dosage: 300 MG
     Route: 048

REACTIONS (1)
  - UPPER RESPIRATORY TRACT INFECTION [None]
